FAERS Safety Report 8154074-5 (Version None)
Quarter: 2012Q1

REPORT INFORMATION
  Report Type: 
  Country: None (occurrence: None)
  Receive Date: 20120221
  Receipt Date: 20120214
  Transmission Date: 20120608
  Serious: Yes (Other)
  Sender: FDA-Public Use
  Company Number: AU-ROCHE-1041223

PATIENT
  Sex: Female

DRUGS (1)
  1. LUCENTIS [Suspect]
     Indication: AGE-RELATED MACULAR DEGENERATION
     Route: 050
     Dates: start: 20110601

REACTIONS (6)
  - RASH GENERALISED [None]
  - SWELLING [None]
  - TENDERNESS [None]
  - FALL [None]
  - BLOOD GLUCOSE INCREASED [None]
  - PERIORBITAL HAEMATOMA [None]
